FAERS Safety Report 7582216-9 (Version None)
Quarter: 2011Q2

REPORT INFORMATION
  Report Type: 
  Country: None (occurrence: None)
  Receive Date: 20110622
  Receipt Date: 20110527
  Transmission Date: 20111010
  Serious: Yes (Hospitalization, Disabling)
  Sender: FDA-Public Use
  Company Number: DSA_46825_2011

PATIENT
  Age: 65 Year
  Sex: Female

DRUGS (8)
  1. ENALAPRIL MALEATE [Suspect]
     Indication: HYPERTENSION
     Dosage: DF, ORAL
     Route: 048
  2. GLUCOPHAGE [Suspect]
     Indication: TYPE 2 DIABETES MELLITUS
     Dosage: DF
  3. HERCEPTIN [Suspect]
     Indication: BREAST CANCER
     Dosage: DF, INTRAVENOUS (NOT OTHERWISE SPEIFIED)
     Route: 042
     Dates: start: 20110107
  4. ESIDRIX [Suspect]
     Indication: HYPERTENSION
     Dosage: DF, ORAL
     Route: 048
  5. TAXOTERE [Suspect]
     Indication: BREAST CANCER
     Dosage: 160 MG, INTRAVENOUS; DF, INTRAVENOUS
     Route: 042
     Dates: start: 20101217, end: 20101217
  6. TAXOTERE [Suspect]
     Indication: BREAST CANCER
     Dosage: 160 MG, INTRAVENOUS; DF, INTRAVENOUS
     Route: 042
     Dates: end: 20110107
  7. DIAMICRON (DIAMICRON - GLICLAZIDE) (NOT SPECIFIED) [Suspect]
     Indication: TYPE 2 DIABETES MELLITUS
     Dosage: DF, ORAL
     Route: 048
  8. CYMBALTA [Suspect]
     Indication: MAJOR DEPRESSION
     Dosage: DF
     Route: 048

REACTIONS (10)
  - SKIN TOXICITY [None]
  - DEHYDRATION [None]
  - BREAST CANCER [None]
  - PAIN [None]
  - UROSEPSIS [None]
  - PALMAR-PLANTAR ERYTHRODYSAESTHESIA SYNDROME [None]
  - BREAST CANCER STAGE III [None]
  - CUSHINGOID [None]
  - FACE OEDEMA [None]
  - OEDEMA PERIPHERAL [None]
